FAERS Safety Report 9788272 (Version 1)
Quarter: 2013Q4

REPORT INFORMATION
  Report Type: Spontaneous
  Country: CA (occurrence: CA)
  Receive Date: 20131230
  Receipt Date: 20131230
  Transmission Date: 20140711
  Serious: Yes (Hospitalization)
  Sender: FDA-Public Use
  Company Number: CA-AMGEN-CANSP2013090289

PATIENT
  Age: 86 Year
  Sex: Male

DRUGS (3)
  1. ARANESP [Suspect]
     Indication: RENAL FAILURE CHRONIC
     Dosage: 30 MUG, UNK
     Route: 065
     Dates: start: 20131217
  2. SALBUTAMOL [Concomitant]
  3. PREGABALIN [Concomitant]
     Dosage: 25 MG, QD

REACTIONS (1)
  - Constipation [Not Recovered/Not Resolved]
